FAERS Safety Report 10733741 (Version 2)
Quarter: 2015Q1

REPORT INFORMATION
  Report Type: Report from Study
  Country: IN (occurrence: IN)
  Receive Date: 20150123
  Receipt Date: 20150209
  Transmission Date: 20150721
  Serious: Yes (Death, Hospitalization, Other)
  Sender: FDA-Public Use
  Company Number: PHHY2015IN002998

PATIENT
  Age: 46 Year
  Sex: Male

DRUGS (1)
  1. GLIVEC [Suspect]
     Active Substance: IMATINIB MESYLATE
     Indication: DERMATOFIBROSARCOMA PROTUBERANS
     Dosage: 400 MG
     Route: 048

REACTIONS (4)
  - Disease recurrence [Unknown]
  - Death [Fatal]
  - Malaise [Unknown]
  - Gastric perforation [Unknown]

NARRATIVE: CASE EVENT DATE: 20150114
